FAERS Safety Report 18873347 (Version 1)
Quarter: 2021Q1

REPORT INFORMATION
  Report Type: Report from Study
  Country: CO (occurrence: CO)
  Receive Date: 20210210
  Receipt Date: 20210210
  Transmission Date: 20210420
  Serious: Yes (Hospitalization)
  Sender: FDA-Public Use
  Company Number: CO-BRISTOL-MYERS SQUIBB COMPANY-BMS-2021-011643

PATIENT
  Age: 58 Year
  Sex: Female

DRUGS (1)
  1. ABATACEPT [Suspect]
     Active Substance: ABATACEPT
     Indication: RHEUMATOID ARTHRITIS
     Dosage: 500 MILLIGRAM, Q4WK
     Route: 065
     Dates: start: 20190617

REACTIONS (2)
  - Urinary tract infection [Recovering/Resolving]
  - Pleural effusion [Recovering/Resolving]

NARRATIVE: CASE EVENT DATE: 20210127
